FAERS Safety Report 6633222-X (Version None)
Quarter: 2010Q1

REPORT INFORMATION
  Report Type: 
  Country: None (occurrence: None)
  Receive Date: 20100312
  Receipt Date: 20100309
  Transmission Date: 20100710
  Serious: Yes (Death, Other)
  Sender: FDA-Public Use
  Company Number: PHHY2010US14661

PATIENT
  Age: 47 Year
  Sex: Female

DRUGS (8)
  1. CYCLOSPORINE [Suspect]
     Indication: HEART TRANSPLANT
  2. MYCOPHENOLATE MOFETIL [Suspect]
     Indication: HEART TRANSPLANT
     Dosage: 1500 MG, BID
  3. AZATHIOPRINE [Suspect]
     Indication: HEART TRANSPLANT
  4. PREDNISONE [Suspect]
     Indication: HEART TRANSPLANT
     Dosage: 100 MG/DAY
     Route: 048
  5. PREDNISONE [Suspect]
     Dosage: 30 MG/DAY
     Route: 048
  6. SOLU-MEDROL [Concomitant]
     Indication: HEART TRANSPLANT
     Dosage: 500 MG, UNK
  7. SOLU-MEDROL [Concomitant]
     Dosage: 125 MG, Q8H, FOR THREE DOSES
  8. DACLIZUMAB [Concomitant]
     Indication: HEART TRANSPLANT

REACTIONS (2)
  - SMALL CELL LUNG CANCER STAGE UNSPECIFIED [None]
  - TRANSPLANT REJECTION [None]
